FAERS Safety Report 6611627-0 (Version None)
Quarter: 2010Q1

REPORT INFORMATION
  Report Type: 
  Country: None (occurrence: None)
  Receive Date: 20100303
  Receipt Date: 20100218
  Transmission Date: 20100710
  Serious: Yes (Death)
  Sender: FDA-Public Use
  Company Number: JP-ALLERGAN-1002656US

PATIENT
  Age: 72 Year
  Sex: Female

DRUGS (4)
  1. LUMIGAN [Suspect]
     Indication: OPEN ANGLE GLAUCOMA
     Dosage: 1 GTT, QD
     Route: 047
     Dates: start: 20100203, end: 20100215
  2. PIRENOXINE [Concomitant]
     Dosage: UNK
     Dates: start: 20090201, end: 20100215
  3. MECOBALAMIN [Concomitant]
     Dosage: UNK
     Dates: start: 20041001, end: 20100215
  4. HYALURONATE SODIUM [Concomitant]
     Dosage: UNK
     Dates: start: 20080306, end: 20100215

REACTIONS (2)
  - DEATH [None]
  - FALL [None]
